FAERS Safety Report 6343074-3 (Version None)
Quarter: 2009Q3

REPORT INFORMATION
  Report Type: 
  Country: None (occurrence: None)
  Receive Date: 20090908
  Receipt Date: 20090831
  Transmission Date: 20100115
  Serious: Yes (Hospitalization)
  Sender: FDA-Public Use
  Company Number: US-ASTRAZENECA-2009SE10843

PATIENT
  Age: 62 Year
  Sex: Female

DRUGS (8)
  1. SYMBICORT [Suspect]
     Indication: ASTHMA
     Route: 055
     Dates: start: 20080801
  2. SYMBICORT [Suspect]
     Indication: CHRONIC OBSTRUCTIVE PULMONARY DISEASE
     Route: 055
     Dates: start: 20080801
  3. SINGULAIR [Concomitant]
  4. THEOPHYLLINE [Concomitant]
  5. DUONEB [Concomitant]
  6. PROVENTIL-HFA [Concomitant]
  7. PLAVIX [Concomitant]
  8. ASPIRIN [Concomitant]

REACTIONS (2)
  - CARDIAC FAILURE CONGESTIVE [None]
  - HEART VALVE INCOMPETENCE [None]
